FAERS Safety Report 6652658-4 (Version None)
Quarter: 2010Q1

REPORT INFORMATION
  Report Type: 
  Country: None (occurrence: None)
  Receive Date: 20100326
  Receipt Date: 20100316
  Transmission Date: 20100710
  Serious: Yes (Other)
  Sender: FDA-Public Use
  Company Number: US-ASTRAZENECA-2010SE01146

PATIENT
  Sex: Female

DRUGS (3)
  1. ARIMIDEX [Suspect]
     Route: 048
     Dates: start: 20070101
  2. LUTEIN [Concomitant]
     Indication: EYE DISORDER
  3. PERSERVISION [Concomitant]
     Indication: EYE DISORDER

REACTIONS (1)
  - MACULAR DEGENERATION [None]
